FAERS Safety Report 20798581 (Version 3)
Quarter: 2022Q2

REPORT INFORMATION
  Report Type: Spontaneous
  Country: CA (occurrence: CA)
  Receive Date: 20220507
  Receipt Date: 20220610
  Transmission Date: 20220721
  Serious: Yes (Hospitalization)
  Sender: FDA-Public Use
  Company Number: CA-CELLTRION INC.-2022CA005952

PATIENT

DRUGS (3)
  1. INFLECTRA [Suspect]
     Active Substance: INFLIXIMAB-DYYB
     Indication: Crohn^s disease
     Dosage: 450 MG, INDUCTION AT Q 0,2, 6 WEEK THEN EVERY 8 WEEKS
     Route: 042
     Dates: start: 20210526
  2. IMURAN [Concomitant]
     Active Substance: AZATHIOPRINE
     Dosage: UNKNOWN
  3. PREDNISONE [Concomitant]
     Active Substance: PREDNISONE
     Dosage: UNKNOWN

REACTIONS (1)
  - Obstruction [Unknown]
